FAERS Safety Report 16707015 (Version 1)
Quarter: 2019Q3

REPORT INFORMATION
  Report Type: Spontaneous
  Country: US (occurrence: US)
  Receive Date: 20190629
  Receipt Date: 20190629
  Transmission Date: 20191004
  Serious: No
  Sender: FDA-Public Use
  Company Number: None

PATIENT
  Age: 56 Year
  Sex: Female

DRUGS (2)
  1. TEMOZOLOMIDE 100MG [Concomitant]
     Active Substance: TEMOZOLOMIDE
  2. TEMOZOLOMIDE 140MG CAP [Suspect]
     Active Substance: TEMOZOLOMIDE
     Dates: start: 201808

REACTIONS (1)
  - Seizure [None]

NARRATIVE: CASE EVENT DATE: 20190622
